FAERS Safety Report 15172078 (Version 1)
Quarter: 2018Q3

REPORT INFORMATION
  Report Type: Spontaneous
  Country: GB (occurrence: GB)
  Receive Date: 20180720
  Receipt Date: 20180720
  Transmission Date: 20181010
  Serious: Yes (Other)
  Sender: FDA-Public Use
  Company Number: GB-TEVA-2018-GB-929363

PATIENT
  Age: 77 Year
  Sex: Male
  Weight: 101 kg

DRUGS (9)
  1. ADIZEM [Concomitant]
     Active Substance: DILTIAZEM HYDROCHLORIDE
  2. WARFARIN [Concomitant]
     Active Substance: WARFARIN
  3. AMIAS [Concomitant]
     Active Substance: CANDESARTAN CILEXETIL
  4. EMOZUL GASTRO?RESISTANT [Concomitant]
  5. AMLODIPINE BESILATE [Suspect]
     Active Substance: AMLODIPINE BESYLATE
     Indication: CHEST PAIN
     Dosage: 5 MILLIGRAM DAILY;
     Route: 048
     Dates: start: 20180531, end: 20180617
  6. NICORANDIL [Concomitant]
     Active Substance: NICORANDIL
  7. CLENIL MODULITE [Concomitant]
     Active Substance: BECLOMETHASONE DIPROPIONATE
  8. DUTASTERIDE. [Concomitant]
     Active Substance: DUTASTERIDE
  9. SALBUTAMOL [Concomitant]
     Active Substance: ALBUTEROL
     Route: 055

REACTIONS (3)
  - Myalgia [Not Recovered/Not Resolved]
  - Arthralgia [Not Recovered/Not Resolved]
  - Back pain [Not Recovered/Not Resolved]

NARRATIVE: CASE EVENT DATE: 20180607
